FAERS Safety Report 6958492-X (Version None)
Quarter: 2010Q3

REPORT INFORMATION
  Report Type: 
  Country: None (occurrence: None)
  Receive Date: 20100831
  Receipt Date: 20100823
  Transmission Date: 20110219
  Serious: Yes (Other)
  Sender: FDA-Public Use
  Company Number: US-JNJFOC-20100400406

PATIENT
  Sex: Male
  Weight: 95.26 kg

DRUGS (10)
  1. REMICADE [Suspect]
     Indication: CROHN'S DISEASE
     Route: 042
  2. MERCAPTOPURINE [Concomitant]
  3. VITAMIN B-12 [Concomitant]
     Route: 058
  4. FOSAMAX [Concomitant]
  5. OS.CAL [Concomitant]
  6. MULTI-VITAMINS [Concomitant]
  7. CORGARD [Concomitant]
  8. TRIPLIX [Concomitant]
  9. FISH OIL [Concomitant]
  10. NIASPAN [Concomitant]

REACTIONS (1)
  - T-CELL LYMPHOMA [None]
